FAERS Safety Report 6556793-0 (Version None)
Quarter: 2010Q1

REPORT INFORMATION
  Report Type: 
  Country: None (occurrence: None)
  Receive Date: 20100128
  Receipt Date: 20100113
  Transmission Date: 20100710
  Serious: Yes (Death, Hospitalization, Disabling)
  Sender: FDA-Public Use
  Company Number: PHHO2009IN11985

PATIENT
  Sex: Male
  Weight: 56 kg

DRUGS (5)
  1. ALISKIREN ALI+TAB+CF [Suspect]
     Indication: CARDIAC FAILURE
     Dosage: DOUBLE BLIND
     Route: 048
     Dates: start: 20090918, end: 20090929
  2. SPIRONOLACTONE [Suspect]
     Indication: CARDIAC FAILURE ACUTE
     Dosage: 50 MG, BID
     Dates: start: 20090917, end: 20090928
  3. TORASEMIDE [Suspect]
     Indication: CARDIAC FAILURE ACUTE
     Dosage: 10 MG, BID
     Route: 048
     Dates: start: 20090917, end: 20090928
  4. CARVEDILOL [Suspect]
  5. LANOXIN [Concomitant]
     Indication: CARDIAC FAILURE ACUTE
     Dosage: 0.25MG (1/2 A DAY)
     Dates: start: 20090913, end: 20090928

REACTIONS (14)
  - ASTHENIA [None]
  - AZOTAEMIA [None]
  - BLOOD CREATININE INCREASED [None]
  - DEATH [None]
  - DECREASED APPETITE [None]
  - HICCUPS [None]
  - HYPOKALAEMIA [None]
  - HYPONATRAEMIA [None]
  - HYPOTENSION [None]
  - RENAL FAILURE ACUTE [None]
  - SOMNOLENCE [None]
  - UNRESPONSIVE TO STIMULI [None]
  - URINE OUTPUT DECREASED [None]
  - VOMITING [None]
